FAERS Safety Report 7291980-8 (Version None)
Quarter: 2011Q1

REPORT INFORMATION
  Report Type: 
  Country: None (occurrence: None)
  Receive Date: 20110214
  Receipt Date: 20110201
  Transmission Date: 20110831
  Serious: Yes (Hospitalization)
  Sender: FDA-Public Use
  Company Number: NL-MYLANLABS-2011S1002152

PATIENT
  Age: 74 Year
  Sex: Female
  Weight: 52 kg

DRUGS (14)
  1. SELOKEEN [Concomitant]
     Indication: PRODUCT USED FOR UNKNOWN INDICATION
     Dosage: 1 DD 50MG ZOC
     Route: 048
     Dates: start: 20100901
  2. TRIAMCINOLONE ACETONIDE [Concomitant]
     Indication: PRODUCT USED FOR UNKNOWN INDICATION
     Dosage: 1DD
     Route: 003
  3. METFORMIN HCL [Concomitant]
     Indication: PRODUCT USED FOR UNKNOWN INDICATION
     Dosage: 3DD500MG
     Route: 048
  4. SIMVASTATIN [Concomitant]
     Indication: PRODUCT USED FOR UNKNOWN INDICATION
     Dosage: 1 DD 40 MG
     Route: 048
     Dates: start: 20100901
  5. PREDNISONE [Concomitant]
     Indication: PRODUCT USED FOR UNKNOWN INDICATION
     Dosage: AFBOUWSCHEMA
     Route: 048
  6. GALENIC /FUSIDIC ACID/TRIAMCINOLONE ACETONIDE [Concomitant]
     Indication: PRODUCT USED FOR UNKNOWN INDICATION
     Dosage: 1DD
     Route: 003
  7. ASCAL /00002702/ [Concomitant]
     Indication: PRODUCT USED FOR UNKNOWN INDICATION
     Dosage: 1 DD 100MG
     Route: 048
     Dates: start: 20100901
  8. LACTULOSE [Concomitant]
     Indication: PRODUCT USED FOR UNKNOWN INDICATION
     Dosage: 2DD30CC
     Route: 048
     Dates: start: 20100901
  9. AMOXICILLIN [Concomitant]
     Dosage: 3DD500MG
     Route: 048
     Dates: end: 20101220
  10. GLIBENCLAMIDE [Concomitant]
     Indication: PRODUCT USED FOR UNKNOWN INDICATION
     Dosage: 2 DD 5MG
     Route: 048
  11. NOVOMIX /01475801/ [Concomitant]
     Indication: PRODUCT USED FOR UNKNOWN INDICATION
     Dosage: VOLGENS SCHEMA
     Route: 058
  12. OMEPRAZOLE [Concomitant]
     Indication: PRODUCT USED FOR UNKNOWN INDICATION
     Dosage: 1DD20MG
     Route: 048
  13. LISINOPRIL [Suspect]
     Indication: CARDIOMYOPATHY
     Dosage: 1 DD 10 MG
     Route: 048
     Dates: start: 20101002, end: 20101011
  14. FUROSEMIDE [Concomitant]
     Indication: PRODUCT USED FOR UNKNOWN INDICATION
     Dosage: 1 DD 40 G
     Route: 048
     Dates: start: 20100901

REACTIONS (2)
  - LICHEN PLANUS [None]
  - BULLOUS IMPETIGO [None]
